FAERS Safety Report 11976686 (Version 3)
Quarter: 2016Q1

REPORT INFORMATION
  Report Type: Spontaneous
  Country: NL (occurrence: NL)
  Receive Date: 20160129
  Receipt Date: 20160215
  Transmission Date: 20160526
  Serious: Yes (Death)
  Sender: FDA-Public Use
  Company Number: US-ASTRAZENECA-2016SE09133

PATIENT
  Age: 84 Year
  Sex: Male

DRUGS (6)
  1. ACENOCOUMAROL [Concomitant]
     Active Substance: ACENOCOUMAROL
  2. DILTIAZEM [Concomitant]
     Active Substance: DILTIAZEM
  3. DAXAS [Suspect]
     Active Substance: ROFLUMILAST
     Indication: CHRONIC OBSTRUCTIVE PULMONARY DISEASE
     Route: 048
     Dates: start: 20110609
  4. PERINDOPRIL [Concomitant]
     Active Substance: PERINDOPRIL
  5. HYDROCHLOROTHIAZIDE. [Concomitant]
     Active Substance: HYDROCHLOROTHIAZIDE
  6. PRAVASTATIN SODIUM. [Concomitant]
     Active Substance: PRAVASTATIN SODIUM

REACTIONS (1)
  - Death [Fatal]

NARRATIVE: CASE EVENT DATE: 20160114
